FAERS Safety Report 8894258 (Version 1)
Quarter: 2012Q4

REPORT INFORMATION
  Report Type: 
  Country: US (occurrence: US)
  Receive Date: 20121107
  Receipt Date: 20121107
  Transmission Date: 20130627
  Serious: Yes (Hospitalization)
  Sender: FDA-Public Use
  Company Number: US-AMGEN-USASP2011056224

PATIENT
  Age: 65 Year
  Sex: Female
  Weight: 82.54 kg

DRUGS (2)
  1. ENBREL [Suspect]
     Indication: RHEUMATOID ARTHRITIS
     Dosage: 50 mg, qwk
     Dates: start: 20110713, end: 20110817
  2. METHOTREXATE [Concomitant]
     Dosage: 22.5 mg, qwk
     Dates: end: 2007

REACTIONS (5)
  - Colitis [Recovered/Resolved]
  - Biopsy colon [Recovered/Resolved]
  - Bacterial infection [Recovered/Resolved]
  - Rash [Recovered/Resolved]
  - Diarrhoea [Recovered/Resolved]
